FAERS Safety Report 22192223 (Version 1)
Quarter: 2023Q2

REPORT INFORMATION
  Report Type: Spontaneous
  Country: US (occurrence: None)
  Receive Date: 20230408
  Receipt Date: 20230408
  Transmission Date: 20230722
  Serious: No
  Sender: FDA-Public Use
  Company Number: None

PATIENT
  Age: 50 Year
  Sex: Female
  Weight: 74.25 kg

DRUGS (13)
  1. CETIRIZINE HYDROCHLORIDE [Suspect]
     Active Substance: CETIRIZINE HYDROCHLORIDE
     Indication: Seasonal allergy
     Dosage: 1 TABLET DAILY ORAL?
     Route: 048
     Dates: start: 20100301, end: 20230406
  2. ATIVAN [Concomitant]
     Active Substance: LORAZEPAM
  3. CELEXA [Concomitant]
     Active Substance: CITALOPRAM HYDROBROMIDE
  4. METOPROLOL SUCCINATE [Concomitant]
     Active Substance: METOPROLOL SUCCINATE
  5. SKELAXIN [Concomitant]
     Active Substance: METAXALONE
  6. ASPIRIN [Concomitant]
     Active Substance: ASPIRIN
  7. FOLIC ACID (FOLATE) [Concomitant]
  8. VITAMINS [Concomitant]
     Active Substance: VITAMINS
  9. TYLENOL [Concomitant]
     Active Substance: ACETAMINOPHEN
  10. SYNTHROID [Concomitant]
     Active Substance: LEVOTHYROXINE SODIUM
  11. VITAMIN D3 [Concomitant]
     Active Substance: CHOLECALCIFEROL
  12. CETIRIZINE HYDROCHLORIDE [Suspect]
     Active Substance: CETIRIZINE HYDROCHLORIDE
     Indication: Dust allergy
  13. CETIRIZINE HYDROCHLORIDE [Suspect]
     Active Substance: CETIRIZINE HYDROCHLORIDE
     Indication: Allergy to animal

REACTIONS (2)
  - Pruritus [None]
  - Sleep disorder [None]

NARRATIVE: CASE EVENT DATE: 20230405
